FAERS Safety Report 7034480-2 (Version None)
Quarter: 2010Q4

REPORT INFORMATION
  Report Type: 
  Country: None (occurrence: None)
  Receive Date: 20101008
  Receipt Date: 20101004
  Transmission Date: 20110411
  Serious: Yes (Life-Threatening, Hospitalization)
  Sender: FDA-Public Use
  Company Number: PHFR2010GB04514

PATIENT
  Age: 39 Year
  Sex: Male

DRUGS (6)
  1. CLOZAPINE [Suspect]
     Dosage: 400 MG
     Route: 048
  2. LITHIUM CARBONATE [Concomitant]
     Dosage: 1000MG/UNK (400MG STRENGTH)
     Route: 048
  3. AMOXICILLIN [Concomitant]
     Indication: NASOPHARYNGITIS
     Route: 065
  4. AMOXICILLIN [Concomitant]
     Indication: OROPHARYNGEAL PAIN
  5. HYOSCINE HBR HYT [Concomitant]
     Dosage: 300 UG, BID
  6. AMISULPRIDE [Concomitant]

REACTIONS (5)
  - FREQUENT BOWEL MOVEMENTS [None]
  - HYPERTHYROIDISM [None]
  - PALPITATIONS [None]
  - THYROXINE FREE INCREASED [None]
  - WEIGHT DECREASED [None]
